FAERS Safety Report 5263964-2 (Version None)
Quarter: 2007Q1

REPORT INFORMATION
  Report Type: 
  Country: None (occurrence: None)
  Receive Date: 20070313
  Receipt Date: 20070302
  Transmission Date: 20070707
  Serious: Yes (Hospitalization)
  Sender: FDA-Public Use
  Company Number: US-ROCHE-481986

PATIENT
  Sex: Female

DRUGS (2)
  1. BONIVA [Suspect]
     Indication: DRUG USE FOR UNKNOWN INDICATION
     Route: 065
     Dates: start: 20051015, end: 20060615
  2. BONIVA [Suspect]
     Route: 065
     Dates: start: 20070215

REACTIONS (2)
  - CARDIAC OPERATION [None]
  - ELECTROLYTE IMBALANCE [None]
